FAERS Safety Report 5397522-6 (Version None)
Quarter: 2007Q3

REPORT INFORMATION
  Report Type: 
  Country: None (occurrence: None)
  Receive Date: 20070726
  Receipt Date: 20070716
  Transmission Date: 20080115
  Serious: Yes (Hospitalization)
  Sender: FDA-Public Use
  Company Number: GB-BAYER-200710767BNE

PATIENT
  Age: 73 Year
  Sex: Male
  Weight: 97 kg

DRUGS (6)
  1. ASPIRIN [Suspect]
     Indication: CARDIOVASCULAR EVENT PROPHYLAXIS
     Route: 048
     Dates: start: 20070419, end: 20070613
  2. CRESTOR [Suspect]
     Indication: BLOOD CHOLESTEROL INCREASED
     Route: 048
     Dates: start: 20070419, end: 20070604
  3. AMOXICILLIN [Concomitant]
     Indication: COUGH
     Dosage: TOTAL DAILY DOSE: 750 MG
     Route: 048
     Dates: start: 20070314, end: 20070321
  4. ATENOLOL [Concomitant]
     Indication: HYPERTENSION
     Route: 048
     Dates: end: 20070430
  5. BENDROFLUMETHIAZIDE [Concomitant]
     Indication: HYPERTENSION
     Route: 048
     Dates: start: 20070402, end: 20070604
  6. SIMPLE LINCTUS [Concomitant]
     Indication: COUGH
     Dosage: TOTAL DAILY DOSE: 15 ML
     Dates: start: 20070302

REACTIONS (1)
  - RENAL FAILURE ACUTE [None]
